FAERS Safety Report 7101488-8 (Version None)
Quarter: 2010Q4

REPORT INFORMATION
  Report Type: 
  Country: None (occurrence: None)
  Receive Date: 20101108
  Receipt Date: 20101027
  Transmission Date: 20110411
  Serious: Yes (Hospitalization)
  Sender: FDA-Public Use
  Company Number: 021234

PATIENT
  Age: 75 Year
  Sex: Male

DRUGS (4)
  1. KEPPRA [Suspect]
     Dosage: (3000 MG)
     Dates: end: 20100101
  2. LACOSAMIDE [Concomitant]
  3. LAMICTAL [Concomitant]
  4. BENZODIAZEPINE DERIVATIVES [Concomitant]

REACTIONS (5)
  - ANTICONVULSANT DRUG LEVEL DECREASED [None]
  - DEPRESSION [None]
  - INCORRECT ROUTE OF DRUG ADMINISTRATION [None]
  - STATUS EPILEPTICUS [None]
  - WRONG TECHNIQUE IN DRUG USAGE PROCESS [None]
